FAERS Safety Report 16310194 (Version 1)
Quarter: 2019Q2

REPORT INFORMATION
  Report Type: Spontaneous
  Country: DE (occurrence: DE)
  Receive Date: 20190514
  Receipt Date: 20190514
  Transmission Date: 20190711
  Serious: Yes (Other)
  Sender: FDA-Public Use
  Company Number: PHHY2019DE106859

PATIENT
  Sex: Male

DRUGS (3)
  1. CYCLOPHOSPHAMIDE. [Suspect]
     Active Substance: CYCLOPHOSPHAMIDE
     Indication: MYOPATHY
     Dosage: UNK
     Route: 065
  2. DEXAMETHASONE. [Suspect]
     Active Substance: DEXAMETHASONE
     Indication: MYOPATHY
     Dosage: UNK
     Route: 065
  3. VELCADE [Suspect]
     Active Substance: BORTEZOMIB
     Indication: MYOPATHY
     Dosage: UNK
     Route: 065

REACTIONS (4)
  - Hypoventilation [Recovering/Resolving]
  - Off label use [Unknown]
  - Product use in unapproved indication [Unknown]
  - Monoclonal immunoglobulin present [Recovering/Resolving]
